FAERS Safety Report 5921056-0 (Version None)
Quarter: 2008Q4

REPORT INFORMATION
  Report Type: 
  Country: None (occurrence: None)
  Receive Date: 20081016
  Receipt Date: 20081008
  Transmission Date: 20090506
  Serious: Yes (Death, Hospitalization, Other)
  Sender: FDA-Public Use
  Company Number: US-PFIZER INC-2008037581

PATIENT
  Sex: Female
  Weight: 49.9 kg

DRUGS (3)
  1. BEXTRA [Suspect]
     Indication: ANALGESIA
     Route: 048
     Dates: start: 20020607
  2. BEXTRA [Suspect]
     Indication: ARTHRITIS
  3. CELEBREX [Suspect]

REACTIONS (3)
  - CARDIAC FAILURE CONGESTIVE [None]
  - MIXED CONNECTIVE TISSUE DISEASE [None]
  - MYOCARDIAL INFARCTION [None]
